FAERS Safety Report 23887368 (Version 4)
Quarter: 2024Q3

REPORT INFORMATION
  Report Type: Spontaneous
  Country: US (occurrence: US)
  Receive Date: 20240523
  Receipt Date: 20240816
  Transmission Date: 20241016
  Serious: Yes (Hospitalization)
  Sender: ROCHE
  Company Number: US-ROCHE-3564841

PATIENT
  Age: 49 Year
  Sex: Female

DRUGS (9)
  1. OCREVUS [Suspect]
     Active Substance: OCRELIZUMAB
     Indication: Primary progressive multiple sclerosis
     Route: 065
     Dates: start: 20240501
  2. OCREVUS [Suspect]
     Active Substance: OCRELIZUMAB
     Route: 065
  3. FLUOROMETHOLONE [Concomitant]
     Active Substance: FLUOROMETHOLONE
  4. BUPROPION [Concomitant]
     Active Substance: BUPROPION
  5. LISINOPRIL [Concomitant]
     Active Substance: LISINOPRIL
  6. METHOTREXATE SODIUM [Concomitant]
     Active Substance: METHOTREXATE SODIUM
  7. OXYBUTYNIN CHLORIDE [Concomitant]
     Active Substance: OXYBUTYNIN CHLORIDE
  8. INTRAROSA [Concomitant]
     Active Substance: PRASTERONE
  9. ATORVASTATIN [Concomitant]
     Active Substance: ATORVASTATIN

REACTIONS (1)
  - Urinary tract infection [Recovered/Resolved]

NARRATIVE: CASE EVENT DATE: 20240508
